FAERS Safety Report 13022139 (Version 1)
Quarter: 2016Q4

REPORT INFORMATION
  Report Type: Spontaneous
  Country: AT (occurrence: AT)
  Receive Date: 20161213
  Receipt Date: 20161213
  Transmission Date: 20170207
  Serious: Yes (Hospitalization)
  Sender: FDA-Public Use
  Company Number: AT-SA-2016SA223731

PATIENT
  Age: 70 Year
  Sex: Male

DRUGS (3)
  1. LANTUS [Suspect]
     Active Substance: INSULIN GLARGINE
     Indication: DIABETES MELLITUS
     Dosage: DOSE: 1 ADMINISTRATION IN THE EVENING
     Route: 058
  2. NOVORAPID [Suspect]
     Active Substance: INSULIN ASPART
     Indication: DIABETES MELLITUS
     Dosage: DOSE: 1 ADMINISTRATION IN THE MORNING AND 1ADMINISTRATION AT MIDDAY
     Route: 058
  3. FORXIGA [Suspect]
     Active Substance: DAPAGLIFLOZIN
     Indication: DIABETES MELLITUS
     Route: 065
     Dates: start: 20161115

REACTIONS (4)
  - Glycosylated haemoglobin increased [Unknown]
  - Ketoacidosis [Recovered/Resolved]
  - Blood glucose increased [Unknown]
  - Treatment noncompliance [Unknown]

NARRATIVE: CASE EVENT DATE: 2016
